FAERS Safety Report 12547957 (Version 1)
Quarter: 2016Q3

REPORT INFORMATION
  Report Type: Spontaneous
  Country: AU (occurrence: None)
  Receive Date: 20160711
  Receipt Date: 20160711
  Transmission Date: 20161109
  Serious: Yes (Death)
  Sender: FDA-Public Use
  Company Number: None

PATIENT
  Age: 59 Year
  Sex: Male
  Weight: 60 kg

DRUGS (6)
  1. CETUXIMAB [Suspect]
     Active Substance: CETUXIMAB
     Indication: TONSIL CANCER
     Route: 042
     Dates: start: 20131021
  2. CETUXIMAB [Suspect]
     Active Substance: CETUXIMAB
     Indication: DISEASE RECURRENCE
     Route: 042
     Dates: start: 20131021
  3. OMEPRAZOLE. [Concomitant]
     Active Substance: OMEPRAZOLE
  4. CODEINE [Concomitant]
     Active Substance: CODEINE
  5. THYROXINE [Concomitant]
     Active Substance: LEVOTHYROXINE
  6. AZITHROMYCIN ANHYDROUS. [Concomitant]
     Active Substance: AZITHROMYCIN ANHYDROUS

REACTIONS (1)
  - Anaphylactic reaction [None]

NARRATIVE: CASE EVENT DATE: 20131021
